FAERS Safety Report 5515246-9 (Version None)
Quarter: 2007Q4

REPORT INFORMATION
  Report Type: 
  Country: None (occurrence: None)
  Receive Date: 20071113
  Receipt Date: 20071106
  Transmission Date: 20080405
  Serious: Yes (Hospitalization)
  Sender: FDA-Public Use
  Company Number: FR-ELI_LILLY_AND_COMPANY-FR200711001075

PATIENT
  Sex: Male

DRUGS (12)
  1. HUMALOG [Suspect]
     Route: 058
     Dates: start: 20070723, end: 20070827
  2. PERFALGAN [Concomitant]
     Indication: PYREXIA
     Route: 058
     Dates: start: 20070723, end: 20070907
  3. OGASTRO [Concomitant]
     Indication: ULCER
     Route: 058
     Dates: start: 20070805, end: 20070905
  4. NOZINAN [Concomitant]
     Dates: start: 20070806, end: 20070906
  5. FENTANYL [Concomitant]
     Dates: start: 20070723, end: 20070913
  6. HYDROCORTISONE [Concomitant]
     Route: 058
     Dates: start: 20070723, end: 20070827
  7. PROPOFOL [Concomitant]
     Dates: start: 20070723, end: 20070822
  8. NIMBEX [Concomitant]
     Route: 048
     Dates: start: 20070723, end: 20070822
  9. OFLOXACIN [Concomitant]
     Route: 058
     Dates: start: 20070822, end: 20070827
  10. VANCOMYCIN [Concomitant]
     Dates: start: 20070818, end: 20070821
  11. TAVANIC [Concomitant]
     Dates: start: 20070818, end: 20070821
  12. TAZOCILLINE [Concomitant]
     Dates: start: 20070818, end: 20070821

REACTIONS (1)
  - NEUTROPENIA [None]
